FAERS Safety Report 9501738 (Version 1)
Quarter: 2013Q3

REPORT INFORMATION
  Report Type: Spontaneous
  Country: US (occurrence: US)
  Receive Date: 20130905
  Receipt Date: 20130905
  Transmission Date: 20140515
  Serious: No
  Sender: FDA-Public Use
  Company Number: US-BAYER-2013-107630

PATIENT
  Sex: Female

DRUGS (1)
  1. ALEVE CAPLET [Suspect]
     Indication: MIGRAINE
     Dosage: 5 DF, ONCE
     Route: 048

REACTIONS (2)
  - Extra dose administered [None]
  - Drug ineffective [None]
